FAERS Safety Report 5398771-3 (Version None)
Quarter: 2007Q3

REPORT INFORMATION
  Report Type: 
  Country: None (occurrence: None)
  Receive Date: 20070724
  Receipt Date: 20070712
  Transmission Date: 20080115
  Serious: Yes (Life-Threatening, Hospitalization)
  Sender: FDA-Public Use
  Company Number: POMP-11121

PATIENT
  Age: 1 Year
  Sex: Male
  Weight: 10.3 kg

DRUGS (1)
  1. MYOZYME [Suspect]
     Indication: GLYCOGEN STORAGE DISEASE TYPE II
     Dosage: 20 MG/KG Q2WKS IV
     Route: 042
     Dates: start: 20061006

REACTIONS (2)
  - PNEUMONIA ASPIRATION [None]
  - RESPIRATORY FAILURE [None]
